FAERS Safety Report 25977205 (Version 1)
Quarter: 2025Q4

REPORT INFORMATION
  Report Type: Spontaneous
  Country: US (occurrence: US)
  Receive Date: 20251030
  Receipt Date: 20251030
  Transmission Date: 20260117
  Serious: Yes (Other)
  Sender: TAKEDA
  Company Number: US-TAKEDA-2025TUS093330

PATIENT
  Sex: Male
  Weight: 66 kg

DRUGS (3)
  1. AGRYLIN [Suspect]
     Active Substance: ANAGRELIDE HYDROCHLORIDE
     Indication: Essential thrombocythaemia
     Dosage: UNK UNK, BID
     Dates: start: 20250805
  2. AGRYLIN [Suspect]
     Active Substance: ANAGRELIDE HYDROCHLORIDE
     Dosage: UNK UNK, QOD
  3. ELIQUIS [Concomitant]
     Active Substance: APIXABAN
     Indication: Anticoagulant therapy
     Dosage: UNK

REACTIONS (6)
  - Macular degeneration [Unknown]
  - Diplopia [Unknown]
  - Weight decreased [Unknown]
  - Fatigue [Unknown]
  - Platelet count decreased [Recovering/Resolving]
  - Vitreous floaters [Unknown]
